FAERS Safety Report 4448472-0 (Version None)
Quarter: 2004Q3

REPORT INFORMATION
  Report Type: 
  Country: None (occurrence: None)
  Receive Date: 20040729
  Receipt Date: 20031201
  Transmission Date: 20050211
  Serious: Yes (Death)
  Sender: FDA-Public Use
  Company Number: USA-2003-0011907

PATIENT
  Age: 45 Year
  Sex: Female
  Weight: 65.8 kg

DRUGS (13)
  1. MORPHINE SULFATE [Suspect]
  2. HYDROMORPHONE HCL (SIMILAR TO IND 38,424) (HYDROMORPHONE HCL) [Suspect]
  3. PROPOXYPHENE HCL [Suspect]
  4. FLURAZEPAM [Suspect]
  5. LORAZEPAM [Suspect]
  6. CITALOPRAM [Suspect]
  7. TRAZODONE HCL [Concomitant]
  8. MIRTAZAPINE [Suspect]
  9. DIPHENYHYDRAMINE (DIPHENHYDRAMINE) [Suspect]
  10. DILTIAZEM [Suspect]
  11. CHLORDIAZEPOXIDE [Suspect]
  12. NICOTINE [Suspect]
  13. CAFFEINE (CAFFEINE) [Suspect]

REACTIONS (2)
  - ACCIDENTAL OVERDOSE [None]
  - MULTIPLE DRUG OVERDOSE [None]
